FAERS Safety Report 8000411-1 (Version None)
Quarter: 2011Q4

REPORT INFORMATION
  Report Type: 
  Country: None (occurrence: None)
  Receive Date: 20111222
  Receipt Date: 20101210
  Transmission Date: 20120403
  Serious: No
  Sender: FDA-Public Use
  Company Number: US-BRISTOL-MYERS SQUIBB COMPANY-15435589

PATIENT
  Age: 6 Decade
  Sex: Female

DRUGS (15)
  1. PRILOSEC [Concomitant]
  2. ZINC [Concomitant]
  3. PRAVACHOL [Suspect]
  4. ZOLOFT [Concomitant]
  5. MOBIC [Concomitant]
  6. HYDRALAZINE HCL [Concomitant]
  7. ALLEGRA [Concomitant]
  8. FLONASE [Concomitant]
  9. VITAMIN D [Concomitant]
  10. CARDIZEM LA [Concomitant]
  11. ELMIRON [Concomitant]
  12. MAGNESIUM [Concomitant]
  13. BIOTIN [Concomitant]
  14. MAXIDEX [Concomitant]
  15. CALCIUM [Concomitant]

REACTIONS (1)
  - ALOPECIA [None]
